FAERS Safety Report 18507899 (Version 1)
Quarter: 2020Q4

REPORT INFORMATION
  Report Type: Spontaneous
  Country: US (occurrence: US)
  Receive Date: 20201116
  Receipt Date: 20201116
  Transmission Date: 20210114
  Serious: Yes (Other)
  Sender: FDA-Public Use
  Company Number: US-PURDUE-USA-2020-0176068

PATIENT
  Sex: Female

DRUGS (4)
  1. OXYCONTIN [Suspect]
     Active Substance: OXYCODONE HYDROCHLORIDE
     Indication: ILLNESS
     Dosage: UNK
     Route: 048
  2. OXYCONTIN [Suspect]
     Active Substance: OXYCODONE HYDROCHLORIDE
     Indication: PAIN
  3. DILAUDID [Suspect]
     Active Substance: HYDROMORPHONE HYDROCHLORIDE
     Indication: PAIN
  4. DILAUDID [Suspect]
     Active Substance: HYDROMORPHONE HYDROCHLORIDE
     Indication: ILLNESS
     Dosage: UNK
     Route: 048

REACTIONS (7)
  - Abortion spontaneous [Unknown]
  - Overdose [Unknown]
  - Syncope [Unknown]
  - Exposure during pregnancy [Unknown]
  - Withdrawal syndrome [Unknown]
  - Drug dependence [Unknown]
  - Anaemia [Unknown]

NARRATIVE: CASE EVENT DATE: 2006
